FAERS Safety Report 22024562 (Version 1)
Quarter: 2023Q1

REPORT INFORMATION
  Report Type: Spontaneous
  Country: US (occurrence: None)
  Receive Date: 20230223
  Receipt Date: 20230223
  Transmission Date: 20230417
  Serious: No
  Sender: FDA-Public Use
  Company Number: US-ROCHE-3062867

PATIENT
  Sex: Female

DRUGS (2)
  1. XOLAIR [Suspect]
     Active Substance: OMALIZUMAB
     Indication: Urticaria chronic
     Dosage: 2-150MG SYRINGES MONTHLY
     Route: 058
     Dates: start: 2014
  2. ZYRTEC [Concomitant]
     Active Substance: CETIRIZINE HYDROCHLORIDE
     Indication: Urticaria chronic
     Route: 048
     Dates: start: 2017

REACTIONS (3)
  - Unevaluable event [Unknown]
  - Musculoskeletal stiffness [Unknown]
  - Product storage error [Unknown]
